FAERS Safety Report 20193015 (Version 1)
Quarter: 2021Q4

REPORT INFORMATION
  Report Type: Spontaneous
  Country: DE (occurrence: DE)
  Receive Date: 20211216
  Receipt Date: 20211216
  Transmission Date: 20220304
  Serious: Yes (Death, Other)
  Sender: FDA-Public Use
  Company Number: DE-ASPEN-GLO2021DE009836

PATIENT

DRUGS (2)
  1. DANAPAROID SODIUM [Suspect]
     Active Substance: DANAPAROID SODIUM
     Indication: Thrombocytopenia
     Dosage: UNK
     Route: 065
  2. FONDAPARINUX SODIUM [Suspect]
     Active Substance: FONDAPARINUX SODIUM
     Indication: Thrombocytopenia
     Dosage: UNK
     Route: 065

REACTIONS (3)
  - Off label use [Fatal]
  - Cerebral haemorrhage [Fatal]
  - Hepatotoxicity [Unknown]
